FAERS Safety Report 4596556-9 (Version None)
Quarter: 2005Q1

REPORT INFORMATION
  Report Type: 
  Country: None (occurrence: None)
  Receive Date: 20050228
  Receipt Date: 20050214
  Transmission Date: 20050727
  Serious: Yes (Hospitalization)
  Sender: FDA-Public Use
  Company Number: 2005033338

PATIENT
  Age: 80 Year
  Sex: Male

DRUGS (5)
  1. SOLU-MEDROL [Suspect]
     Indication: ILL-DEFINED DISORDER
     Dosage: 60 MG (EVERY DAY), INTRAVENOUS
     Route: 042
     Dates: start: 20041217, end: 20041227
  2. FUROSEMIDE [Suspect]
     Indication: ILL-DEFINED DISORDER
     Dosage: 40 MG (40 MG, DAILY), ORAL
     Route: 048
     Dates: start: 20041217, end: 20041229
  3. ALMITRINE DIMESILATE (ALMITRINE DIMESILATE) [Suspect]
     Indication: ILL-DEFINED DISORDER
     Dosage: 100 MG (50 MG, DAILY), ORAL
     Route: 048
     Dates: start: 20041217, end: 20041229
  4. ERYTHROMYCIN [Suspect]
     Indication: ILL-DEFINED DISORDER
     Dosage: 2 GRAM (EVERY DAY), INTRAVENOUS
     Route: 042
     Dates: start: 20041215, end: 20041231
  5. HYDROXYZINE HCL [Concomitant]

REACTIONS (3)
  - BLOOD CREATINE PHOSPHOKINASE INCREASED [None]
  - LUNG DISORDER [None]
  - MYOGLOBIN BLOOD INCREASED [None]
